FAERS Safety Report 6842422-5 (Version None)
Quarter: 2010Q3

REPORT INFORMATION
  Report Type: 
  Country: None (occurrence: None)
  Receive Date: 20100714
  Receipt Date: 20070813
  Transmission Date: 20110219
  Serious: No
  Sender: FDA-Public Use
  Company Number: US-PFIZER INC-2007063293

PATIENT
  Sex: Female
  Weight: 61.2 kg

DRUGS (2)
  1. CHANTIX [Suspect]
     Indication: SMOKING CESSATION THERAPY
     Dates: start: 20070715
  2. NIACIN [Concomitant]
     Indication: BLOOD CHOLESTEROL
     Dates: start: 20060101

REACTIONS (4)
  - CONSTIPATION [None]
  - HOT FLUSH [None]
  - MALAISE [None]
  - NAUSEA [None]
